FAERS Safety Report 14196192 (Version 1)
Quarter: 2017Q4

REPORT INFORMATION
  Report Type: Spontaneous
  Country: US (occurrence: US)
  Receive Date: 20171116
  Receipt Date: 20171116
  Transmission Date: 20180321
  Serious: No
  Sender: FDA-Public Use
  Company Number: US-BAUSCH-BL-2017-027742

PATIENT
  Age: 22 Year
  Sex: Male

DRUGS (3)
  1. CLONIDINE. [Concomitant]
     Active Substance: CLONIDINE
     Indication: PRODUCT USED FOR UNKNOWN INDICATION
  2. TOPAMAX [Concomitant]
     Active Substance: TOPIRAMATE
     Indication: PRODUCT USED FOR UNKNOWN INDICATION
  3. XENAZINE [Suspect]
     Active Substance: TETRABENAZINE
     Indication: TOURETTE^S DISORDER
     Route: 048
     Dates: start: 200901

REACTIONS (8)
  - Anxiety [Unknown]
  - Labile blood pressure [Unknown]
  - Off label use [Not Recovered/Not Resolved]
  - Tic [Unknown]
  - Weight abnormal [Unknown]
  - Anger [Unknown]
  - Neck pain [Unknown]
  - Mood swings [Unknown]

NARRATIVE: CASE EVENT DATE: 200901
